FAERS Safety Report 13649141 (Version 2)
Quarter: 2017Q4

REPORT INFORMATION
  Report Type: Spontaneous
  Country: US (occurrence: US)
  Receive Date: 20170613
  Receipt Date: 20171228
  Transmission Date: 20180320
  Serious: Yes (Other)
  Sender: FDA-Public Use
  Company Number: US-BAUSCH-BL-2017-018945

PATIENT
  Sex: Female

DRUGS (2)
  1. CAPSAICIN. [Suspect]
     Active Substance: CAPSAICIN
     Indication: ERYTHROMELALGIA
     Dosage: HIGH-DOSE  CYCLICAL
     Route: 065
  2. GLYCERYL TRINITRATE [Suspect]
     Active Substance: NITROGLYCERIN
     Indication: ERYTHROMELALGIA
     Dosage: CYCLICAL
     Route: 042

REACTIONS (1)
  - Skin exfoliation [Unknown]
